FAERS Safety Report 5327851-3 (Version None)
Quarter: 2007Q2

REPORT INFORMATION
  Report Type: 
  Country: None (occurrence: None)
  Receive Date: 20070517
  Receipt Date: 20070510
  Transmission Date: 20071010
  Serious: Yes (Hospitalization)
  Sender: FDA-Public Use
  Company Number: FR-BRISTOL-MYERS SQUIBB COMPANY-13759881

PATIENT
  Age: 65 Year
  Sex: Male

DRUGS (13)
  1. ENDOXAN [Suspect]
     Indication: T-CELL LYMPHOMA
     Route: 042
     Dates: start: 20061219, end: 20061219
  2. METHOTREXATE [Suspect]
     Indication: T-CELL LYMPHOMA
     Route: 042
     Dates: start: 20070210, end: 20070210
  3. METHOTREXATE [Suspect]
     Route: 037
     Dates: start: 20070210, end: 20070210
  4. BLEOMYCIN [Suspect]
     Indication: T-CELL LYMPHOMA
     Route: 042
     Dates: start: 20061223, end: 20061223
  5. VELCADE [Suspect]
     Indication: T-CELL LYMPHOMA
     Route: 042
     Dates: start: 20070210, end: 20070210
  6. VALACYCLOVIR HCL [Concomitant]
     Route: 048
     Dates: start: 20061001
  7. BACTRIM [Concomitant]
     Route: 048
  8. LEDERFOLINE [Concomitant]
     Dates: start: 20061001
  9. TRIMETAZIDINE [Concomitant]
  10. TAHOR [Concomitant]
  11. INIPOMP [Concomitant]
  12. HOLOXAN [Concomitant]
  13. ETOPOSIDE [Concomitant]

REACTIONS (9)
  - ACCOMMODATION DISORDER [None]
  - AMNESTIC DISORDER [None]
  - CLOSTRIDIUM DIFFICILE COLITIS [None]
  - CYTOMEGALOVIRUS INFECTION [None]
  - DEPRESSION [None]
  - EPISTAXIS [None]
  - INTERSTITIAL LUNG DISEASE [None]
  - LUNG DISORDER [None]
  - TONGUE COATED [None]
